FAERS Safety Report 22211167 (Version 1)
Quarter: 2023Q2

REPORT INFORMATION
  Report Type: Spontaneous
  Country: US (occurrence: US)
  Receive Date: 20230414
  Receipt Date: 20230414
  Transmission Date: 20230722
  Serious: Yes (Hospitalization, Other)
  Sender: FDA-Public Use
  Company Number: US-SA-SAC20230414000293

PATIENT
  Age: 74 Year
  Sex: Female

DRUGS (4)
  1. DUPIXENT [Suspect]
     Active Substance: DUPILUMAB
     Indication: Neurodermatitis
     Dosage: 300 MG, QOW
     Route: 058
  2. DUPIXENT [Suspect]
     Active Substance: DUPILUMAB
     Indication: Dermatitis atopic
  3. METHOTREXATE [Concomitant]
     Active Substance: METHOTREXATE
  4. COSENTYX [Concomitant]
     Active Substance: SECUKINUMAB

REACTIONS (4)
  - Haemorrhage [Recovered/Resolved]
  - COVID-19 [Unknown]
  - Influenza [Unknown]
  - Polypectomy [Unknown]

NARRATIVE: CASE EVENT DATE: 20220101
